FAERS Safety Report 20597570 (Version 2)
Quarter: 2022Q1

REPORT INFORMATION
  Report Type: Spontaneous
  Country: US (occurrence: None)
  Receive Date: 20220315
  Receipt Date: 20220315
  Transmission Date: 20220423
  Serious: No
  Sender: FDA-Public Use
  Company Number: US-ROCHE-2874397

PATIENT
  Sex: Female

DRUGS (1)
  1. XOLAIR [Suspect]
     Active Substance: OMALIZUMAB
     Indication: Product used for unknown indication
     Dosage: XOLAIR PFS 150 MG ML AND LAST TAKEN ON 6/8
     Route: 065

REACTIONS (3)
  - Medication error [Unknown]
  - Product dose omission issue [Unknown]
  - No adverse event [Unknown]
